FAERS Safety Report 7365881-0 (Version None)
Quarter: 2011Q1

REPORT INFORMATION
  Report Type: 
  Country: None (occurrence: None)
  Receive Date: 20110322
  Receipt Date: 20110314
  Transmission Date: 20110831
  Serious: Yes (Hospitalization, Other)
  Sender: FDA-Public Use
  Company Number: US-US-EMD SERONO, INC.-7039021

PATIENT
  Sex: Female

DRUGS (1)
  1. REBIF [Suspect]
     Indication: MULTIPLE SCLEROSIS
     Route: 058
     Dates: start: 20071221

REACTIONS (6)
  - POST PROCEDURAL INFECTION [None]
  - CENTRAL NERVOUS SYSTEM LESION [None]
  - SELF INJURIOUS BEHAVIOUR [None]
  - DEPRESSED MOOD [None]
  - ANXIETY [None]
  - AFFECTIVE DISORDER [None]
